FAERS Safety Report 25520294 (Version 1)
Quarter: 2025Q3

REPORT INFORMATION
  Report Type: Spontaneous
  Country: EU (occurrence: EU)
  Receive Date: 20250704
  Receipt Date: 20250704
  Transmission Date: 20251021
  Serious: Yes (Other)
  Sender: BRISTOL-MYERS SQUIBB COMPANY
  Company Number: EU-BRISTOL-MYERS SQUIBB COMPANY-2025-093617

PATIENT
  Age: 54 Year
  Sex: Male

DRUGS (4)
  1. ELIQUIS [Suspect]
     Active Substance: APIXABAN
     Indication: Thrombosis prophylaxis
     Route: 048
  2. ELIQUIS [Suspect]
     Active Substance: APIXABAN
     Route: 048
  3. OLMESARTAN [Concomitant]
     Active Substance: OLMESARTAN
     Indication: Product used for unknown indication
  4. AMLODIPINE BESYLATE\HYDROCHLOROTHIAZIDE\OLMESARTAN MEDOXOMIL [Concomitant]
     Active Substance: AMLODIPINE BESYLATE\HYDROCHLOROTHIAZIDE\OLMESARTAN MEDOXOMIL
     Indication: Product used for unknown indication

REACTIONS (14)
  - Muscle rupture [Unknown]
  - Thrombosis [Unknown]
  - Blood pressure abnormal [Not Recovered/Not Resolved]
  - Bundle branch block right [Unknown]
  - Thrombophlebitis [Unknown]
  - Embolism [Unknown]
  - Hypercoagulation [Not Recovered/Not Resolved]
  - Renal function test abnormal [Unknown]
  - Fibrin D dimer increased [Unknown]
  - Malaise [Unknown]
  - Haematoma [Unknown]
  - Osteoarthritis [Not Recovered/Not Resolved]
  - Infection [Unknown]
  - Embolism venous [Unknown]

NARRATIVE: CASE EVENT DATE: 20170101
